FAERS Safety Report 8075517-1 (Version None)
Quarter: 2012Q1

REPORT INFORMATION
  Report Type: 
  Country: None (occurrence: None)
  Receive Date: 20120127
  Receipt Date: 20120124
  Transmission Date: 20120608
  Serious: Yes (Disabling, Other)
  Sender: FDA-Public Use
  Company Number: CA-BAYER-2012-007489

PATIENT
  Sex: Male

DRUGS (2)
  1. AVELOX [Suspect]
     Indication: SINUSITIS
     Dosage: 400 MG, ONCE
     Dates: start: 20110405
  2. ADVAIR DISKUS 100/50 [Concomitant]
     Indication: ASTHMA

REACTIONS (15)
  - COGNITIVE DISORDER [None]
  - MENTAL IMPAIRMENT [None]
  - TENDON INJURY [None]
  - PAIN [None]
  - NERVOUS SYSTEM DISORDER [None]
  - ALLERGY TO CHEMICALS [None]
  - MOBILITY DECREASED [None]
  - BURNING SENSATION [None]
  - MUSCLE TWITCHING [None]
  - ASTHMA [None]
  - MYALGIA [None]
  - SKIN DISORDER [None]
  - TENDON PAIN [None]
  - VISUAL IMPAIRMENT [None]
  - ARTHRALGIA [None]
